FAERS Safety Report 9526154 (Version 2)
Quarter: 2013Q4

REPORT INFORMATION
  Report Type: Spontaneous
  Country: US (occurrence: US)
  Receive Date: 20130916
  Receipt Date: 20131109
  Transmission Date: 20140711
  Serious: No
  Sender: FDA-Public Use
  Company Number: US-B.I. PHARMACEUTICALS,INC./RIDGEFIELD-2013-BI-27491BP

PATIENT
  Age: 75 Year
  Sex: Female
  Weight: 67.13 kg

DRUGS (9)
  1. SPIRIVA [Suspect]
     Indication: CHRONIC OBSTRUCTIVE PULMONARY DISEASE
     Dosage: 18 MCG
     Route: 055
     Dates: start: 2008, end: 20130831
  2. CLARITIN [Concomitant]
     Indication: MULTIPLE ALLERGIES
     Dosage: 1 ANZ
     Route: 048
  3. ASPIRIN [Concomitant]
     Indication: MYOCARDIAL INFARCTION
     Dosage: 325 MG
     Route: 048
  4. ASPIRIN [Concomitant]
     Dosage: 81 MG
  5. METOPROLOL [Concomitant]
     Indication: MYOCARDIAL INFARCTION
     Dosage: 25 MG
     Route: 048
  6. METOPROLOL [Concomitant]
     Indication: BLOOD PRESSURE
  7. SIMVASTATIN [Concomitant]
     Indication: BLOOD CHOLESTEROL INCREASED
     Dosage: 10 MG
     Route: 048
  8. SIMVASTATIN [Concomitant]
     Indication: LIPIDS
  9. CLARITIN D [Concomitant]
     Indication: RHINITIS
     Dosage: DOSE: ONE

REACTIONS (3)
  - Oral mucosal erythema [Recovered/Resolved]
  - Stomatitis [Not Recovered/Not Resolved]
  - Pulmonary congestion [Recovered/Resolved]
